FAERS Safety Report 8070622-8 (Version None)
Quarter: 2012Q1

REPORT INFORMATION
  Report Type: 
  Country: None (occurrence: None)
  Receive Date: 20120125
  Receipt Date: 20120116
  Transmission Date: 20120608
  Serious: Yes (Other)
  Sender: FDA-Public Use
  Company Number: PHHY2009CA50080

PATIENT
  Sex: Male

DRUGS (1)
  1. SANDOSTATIN LAR [Suspect]
     Indication: CARCINOID TUMOUR
     Dosage: 30 MG, QW4
     Route: 030
     Dates: start: 20091114

REACTIONS (9)
  - MALAISE [None]
  - ABDOMINAL PAIN LOWER [None]
  - MUSCLE SPASMS [None]
  - PYREXIA [None]
  - PAIN IN EXTREMITY [None]
  - BLOOD PRESSURE SYSTOLIC INCREASED [None]
  - HYPOAESTHESIA [None]
  - FALL [None]
  - BACK PAIN [None]
